FAERS Safety Report 22034935 (Version 1)
Quarter: 2023Q1

REPORT INFORMATION
  Report Type: Spontaneous
  Country: US (occurrence: US)
  Receive Date: 20230224
  Receipt Date: 20230224
  Transmission Date: 20230417
  Serious: No
  Sender: FDA-Public Use
  Company Number: US-REGENERON PHARMACEUTICALS, INC.-2022-154920

PATIENT
  Sex: Male

DRUGS (1)
  1. EVKEEZA [Suspect]
     Active Substance: EVINACUMAB-DGNB
     Indication: Product used for unknown indication
     Route: 065

REACTIONS (3)
  - Blood pressure increased [Unknown]
  - Dizziness [Unknown]
  - Heart rate increased [Unknown]

NARRATIVE: CASE EVENT DATE: 20220101
